FAERS Safety Report 16783077 (Version 2)
Quarter: 2019Q3

REPORT INFORMATION
  Report Type: Spontaneous
  Country: GB (occurrence: GB)
  Receive Date: 20190906
  Receipt Date: 20190913
  Transmission Date: 20191005
  Serious: Yes (Death, Hospitalization, Other)
  Sender: FDA-Public Use
  Company Number: GB-AUROBINDO-AUR-APL-2019-058198

PATIENT
  Age: 83 Year
  Sex: Female

DRUGS (9)
  1. TINZAPARIN [Suspect]
     Active Substance: TINZAPARIN
     Indication: ARRHYTHMIA PROPHYLAXIS
     Dosage: UNK
     Route: 065
     Dates: start: 20190810
  2. PEPTAC [Concomitant]
     Active Substance: RANITIDINE HYDROCHLORIDE
     Indication: GASTROOESOPHAGEAL REFLUX DISEASE
     Dosage: UNK
     Route: 065
  3. JANUVIA [Concomitant]
     Active Substance: SITAGLIPTIN PHOSPHATE
     Indication: TYPE 2 DIABETES MELLITUS
     Dosage: 100 MILLIGRAM, ONCE A DAY
     Route: 048
  4. BISOPROLOL [Suspect]
     Active Substance: BISOPROLOL
     Indication: TACHYCARDIA
     Dosage: UNK
     Route: 065
     Dates: start: 20190810
  5. TINZAPARIN [Suspect]
     Active Substance: TINZAPARIN
     Indication: THROMBOSIS PROPHYLAXIS
  6. GLIMEPIRIDE. [Concomitant]
     Active Substance: GLIMEPIRIDE
     Indication: TYPE 2 DIABETES MELLITUS
     Dosage: 2 MILLIGRAM, ONCE A DAY
     Route: 048
  7. TINZAPARIN [Suspect]
     Active Substance: TINZAPARIN
     Indication: THROMBOSIS PROPHYLAXIS
  8. GLUCOPHAG [Suspect]
     Active Substance: METFORMIN HYDROCHLORIDE
     Indication: TYPE 2 DIABETES MELLITUS
     Dosage: 0.5 DAY
     Route: 065
     Dates: end: 20190811
  9. SITAGLIPTIN [Concomitant]
     Active Substance: SITAGLIPTIN
     Indication: PRODUCT USED FOR UNKNOWN INDICATION
     Dosage: UNK
     Route: 065

REACTIONS (15)
  - Myocardial infarction [Fatal]
  - Vomiting [Recovered/Resolved]
  - Diarrhoea [Unknown]
  - Cough [Not Recovered/Not Resolved]
  - Restlessness [Unknown]
  - Idiopathic pulmonary fibrosis [Unknown]
  - Decreased appetite [Unknown]
  - Sepsis [Fatal]
  - Acute kidney injury [Not Recovered/Not Resolved]
  - Nausea [Not Recovered/Not Resolved]
  - Dehydration [Not Recovered/Not Resolved]
  - Acidosis [Not Recovered/Not Resolved]
  - Weight decreased [Not Recovered/Not Resolved]
  - Abdominal distension [Not Recovered/Not Resolved]
  - Gastrooesophageal reflux disease [Not Recovered/Not Resolved]

NARRATIVE: CASE EVENT DATE: 2019
